FAERS Safety Report 5757887-X (Version None)
Quarter: 2008Q2

REPORT INFORMATION
  Report Type: 
  Country: None (occurrence: None)
  Receive Date: 20080602
  Receipt Date: 20080602
  Transmission Date: 20081010
  Serious: Yes (Hospitalization, Disabling)
  Sender: FDA-Public Use
  Company Number: None

PATIENT
  Sex: Male
  Weight: 79.3795 kg

DRUGS (1)
  1. MODAFINIL [Suspect]
     Indication: CIRCADIAN RHYTHM SLEEP DISORDER
     Dosage: SEE ABOVE PO
     Route: 048
     Dates: start: 20080419, end: 20080425

REACTIONS (7)
  - ACTIVITIES OF DAILY LIVING IMPAIRED [None]
  - ANXIETY [None]
  - BACK PAIN [None]
  - BRUXISM [None]
  - CONFUSIONAL STATE [None]
  - DYSSTASIA [None]
  - IMPAIRED SELF-CARE [None]
